FAERS Safety Report 6606658-0 (Version None)
Quarter: 2010Q1

REPORT INFORMATION
  Report Type: 
  Country: None (occurrence: None)
  Receive Date: 20100226
  Receipt Date: 20100218
  Transmission Date: 20100710
  Serious: Yes (Hospitalization, Other)
  Sender: FDA-Public Use
  Company Number: US-ABBOTT-10P-163-0627713-00

PATIENT
  Age: 23 Year
  Sex: Male

DRUGS (1)
  1. NIASPAN [Suspect]
     Indication: OFF LABEL USE
     Dosage: 22.5 GRAM

REACTIONS (2)
  - DRUG TOXICITY [None]
  - RENAL FAILURE ACUTE [None]
